FAERS Safety Report 6160710-5 (Version None)
Quarter: 2009Q2

REPORT INFORMATION
  Report Type: 
  Country: None (occurrence: None)
  Receive Date: 20090420
  Receipt Date: 20090414
  Transmission Date: 20091009
  Serious: Yes (Hospitalization, Disabling, Other)
  Sender: FDA-Public Use
  Company Number: US-ALLERGAN-0904671US

PATIENT
  Sex: Female

DRUGS (2)
  1. BOTOX [Suspect]
     Indication: SKIN WRINKLING
     Dosage: 37 UNITS, SINGLE
     Route: 030
     Dates: start: 20090324, end: 20090324
  2. THYROID MEDICATION [Concomitant]

REACTIONS (15)
  - DRUG INEFFECTIVE [None]
  - EYE DISORDER [None]
  - EYE PAIN [None]
  - EYELID OEDEMA [None]
  - EYELID PTOSIS [None]
  - FACIAL PARESIS [None]
  - HEADACHE [None]
  - HEMIPLEGIA [None]
  - INFLUENZA [None]
  - MALAISE [None]
  - MUSCULAR WEAKNESS [None]
  - NECK PAIN [None]
  - PAIN [None]
  - PARAESTHESIA [None]
  - SENSATION OF HEAVINESS [None]
